FAERS Safety Report 6197150-9 (Version None)
Quarter: 2009Q2

REPORT INFORMATION
  Report Type: 
  Country: None (occurrence: None)
  Receive Date: 20090520
  Receipt Date: 20090519
  Transmission Date: 20091009
  Serious: Yes (Death, Hospitalization, Other)
  Sender: FDA-Public Use
  Company Number: BR-ABBOTT-09P-163-0574401-00

PATIENT
  Sex: Male
  Weight: 90.5 kg

DRUGS (4)
  1. KALETRA [Suspect]
     Indication: HIV INFECTION
     Route: 048
     Dates: start: 20080306
  2. MARAVIROC [Suspect]
     Indication: HIV INFECTION
     Route: 048
     Dates: start: 20080306
  3. ATAZANAVIR SULFATE [Suspect]
     Indication: HIV INFECTION
     Route: 048
     Dates: start: 20080306
  4. AMLODIPINE [Concomitant]
     Indication: HYPERTENSION
     Dates: start: 20070701

REACTIONS (3)
  - APPENDICITIS [None]
  - DYSPNOEA [None]
  - EMBOLISM [None]
